FAERS Safety Report 8058321-X (Version None)
Quarter: 2012Q1

REPORT INFORMATION
  Report Type: 
  Country: None (occurrence: None)
  Receive Date: 20120120
  Receipt Date: 20120110
  Transmission Date: 20120608
  Serious: Yes (Hospitalization)
  Sender: FDA-Public Use
  Company Number: US-BAYER-2010-001678

PATIENT
  Age: 29 Year
  Sex: Female
  Weight: 52.154 kg

DRUGS (2)
  1. YASMIN [Suspect]
     Indication: CONTRACEPTION
     Dosage: UNK
     Route: 048
     Dates: start: 20061101, end: 20090901
  2. YASMIN [Suspect]
     Indication: ACNE

REACTIONS (1)
  - CHOLELITHIASIS [None]
